FAERS Safety Report 9551146 (Version 1)
Quarter: 2013Q3

REPORT INFORMATION
  Report Type: Spontaneous
  Country: US (occurrence: US)
  Receive Date: 20130925
  Receipt Date: 20130925
  Transmission Date: 20140515
  Serious: No
  Sender: FDA-Public Use
  Company Number: US-BIOGENIDEC-2013BI089420

PATIENT
  Age: 61 Year
  Sex: Female

DRUGS (2)
  1. TYSABRI [Suspect]
     Indication: MULTIPLE SCLEROSIS
     Route: 042
     Dates: start: 20090422
  2. AMPYRA [Concomitant]
     Indication: MULTIPLE SCLEROSIS
     Dates: start: 2012, end: 2012

REACTIONS (5)
  - Weight decreased [Recovered/Resolved]
  - Abdominal pain upper [Not Recovered/Not Resolved]
  - Stress [Recovered/Resolved]
  - Gastric disorder [Unknown]
  - Nausea [Not Recovered/Not Resolved]
